FAERS Safety Report 8173491-0 (Version None)
Quarter: 2012Q1

REPORT INFORMATION
  Report Type: 
  Country: None (occurrence: None)
  Receive Date: 20120223
  Receipt Date: 20120207
  Transmission Date: 20120608
  Serious: Yes (Other)
  Sender: FDA-Public Use
  Company Number: WAES 1112DEU00022

PATIENT
  Age: 55 Year
  Sex: Female

DRUGS (1)
  1. ALENDRONATE SODIUM [Suspect]
     Dosage: 70 MG/WKY, PO
     Route: 048
     Dates: start: 20100929

REACTIONS (2)
  - SPINAL FRACTURE [None]
  - FALL [None]
